FAERS Safety Report 19895277 (Version 1)
Quarter: 2021Q3

REPORT INFORMATION
  Report Type: Spontaneous
  Country: US (occurrence: US)
  Receive Date: 20210929
  Receipt Date: 20210929
  Transmission Date: 20211014
  Serious: Yes (Death)
  Sender: FDA-Public Use
  Company Number: None

PATIENT
  Sex: Female

DRUGS (3)
  1. DEFERASIROX. [Suspect]
     Active Substance: DEFERASIROX
     Indication: HAEMOCHROMATOSIS
     Route: 048
     Dates: start: 20210428
  2. VITAMIN D [Concomitant]
     Active Substance: VITAMIN D NOS
  3. VITAMIN B12 [Concomitant]
     Active Substance: CYANOCOBALAMIN

REACTIONS (1)
  - Death [None]
